FAERS Safety Report 4903109-9 (Version None)
Quarter: 2006Q1

REPORT INFORMATION
  Report Type: 
  Country: None (occurrence: None)
  Receive Date: 20060207
  Receipt Date: 20060123
  Transmission Date: 20060701
  Serious: Yes (Other)
  Sender: FDA-Public Use
  Company Number: US-ROCHE-433371

PATIENT
  Age: 52 Year
  Sex: Male
  Weight: 127 kg

DRUGS (2)
  1. PEGASYS [Suspect]
     Dosage: ROUTE = INJ STRENGTH AND FORMULATION = 180 MCG/0.5 ML
     Route: 058
     Dates: start: 20051107
  2. COPEGUS [Suspect]
     Dosage: TAKEN 3 TABLETS IN MORNING AND 3 TABLETS IN AFTERNOON
     Route: 048
     Dates: start: 20051107

REACTIONS (3)
  - ANXIETY [None]
  - BREAST MASS [None]
  - HYPERAESTHESIA [None]
